FAERS Safety Report 7542782-6 (Version None)
Quarter: 2011Q2

REPORT INFORMATION
  Report Type: 
  Country: None (occurrence: None)
  Receive Date: 20110613
  Receipt Date: 20110606
  Transmission Date: 20111010
  Serious: Yes (Hospitalization, Disabling)
  Sender: FDA-Public Use
  Company Number: D0071685A

PATIENT
  Sex: Male
  Weight: 56 kg

DRUGS (6)
  1. UROKINASE [Concomitant]
     Route: 065
     Dates: start: 20110407
  2. HEPARIN SODIUM [Suspect]
     Indication: PERIPHERAL ARTERIAL OCCLUSIVE DISEASE
     Route: 065
  3. PLAVIX [Concomitant]
     Route: 065
     Dates: start: 20110406
  4. ALPROSTADIL [Suspect]
     Route: 065
  5. ARIXTRA [Suspect]
     Indication: PERIPHERAL ARTERIAL OCCLUSIVE DISEASE
     Dosage: 7.5MG PER DAY
     Route: 065
  6. ASPIRIN [Concomitant]
     Route: 065
     Dates: start: 20110406

REACTIONS (8)
  - PARESIS [None]
  - GAIT DISTURBANCE [None]
  - MUSCULOSKELETAL PAIN [None]
  - IMPAIRED HEALING [None]
  - HYPOAESTHESIA [None]
  - HAEMATOMA [None]
  - SPINAL CORD HAEMORRHAGE [None]
  - SPINAL LAMINECTOMY [None]
